FAERS Safety Report 9155036 (Version 1)
Quarter: 2013Q1

REPORT INFORMATION
  Report Type: Spontaneous
  Country: DE (occurrence: DE)
  Receive Date: 20130311
  Receipt Date: 20130311
  Transmission Date: 20140127
  Serious: Yes (Other)
  Sender: FDA-Public Use
  Company Number: PHHY2013DE022640

PATIENT
  Sex: Female

DRUGS (1)
  1. GLIVEC [Suspect]
     Dosage: 400 MG, QD
     Dates: start: 200605, end: 201211

REACTIONS (1)
  - Paronychia [Unknown]
